FAERS Safety Report 4990225-9 (Version None)
Quarter: 2006Q2

REPORT INFORMATION
  Report Type: 
  Country: None (occurrence: None)
  Receive Date: 20060503
  Receipt Date: 20060327
  Transmission Date: 20061013
  Serious: Yes (Hospitalization, Other)
  Sender: FDA-Public Use
  Company Number: US-MERCK-0603USA04267

PATIENT
  Age: 67 Year
  Sex: Female
  Weight: 67 kg

DRUGS (5)
  1. VIOXX [Suspect]
     Indication: PAIN MANAGEMENT
     Route: 048
     Dates: start: 20010502, end: 20030913
  2. PAXIL [Concomitant]
     Route: 065
  3. PREMPRO [Concomitant]
     Route: 065
  4. MIACALCIN [Concomitant]
     Route: 065
  5. DITROPAN XL [Concomitant]
     Route: 065

REACTIONS (5)
  - ABDOMINAL HAEMATOMA [None]
  - ARTHROPATHY [None]
  - BACK DISORDER [None]
  - ISCHAEMIC STROKE [None]
  - THROMBOSIS [None]
